FAERS Safety Report 25057648 (Version 1)
Quarter: 2025Q1

REPORT INFORMATION
  Report Type: Spontaneous
  Country: US (occurrence: US)
  Receive Date: 20250310
  Receipt Date: 20250310
  Transmission Date: 20250409
  Serious: No
  Sender: ARS PHARMACEUTICALS OPERATIONS, INC.
  Company Number: US-ARS PHARMACEUTICALS OPERATIONS, INC.-2024ARP00013

PATIENT
  Sex: Female

DRUGS (4)
  1. NEFFY [Suspect]
     Active Substance: EPINEPHRINE
     Indication: Allergy test
     Route: 045
     Dates: start: 202411, end: 202411
  2. NEFFY [Suspect]
     Active Substance: EPINEPHRINE
     Indication: Hypersensitivity
  3. FLONASE [Concomitant]
     Active Substance: FLUTICASONE PROPIONATE
  4. UNSPECIFIED NASAL SPRAYS [Concomitant]

REACTIONS (1)
  - Rhinalgia [Recovered/Resolved]

NARRATIVE: CASE EVENT DATE: 20241101
